FAERS Safety Report 9633174 (Version 2)
Quarter: 2013Q4

REPORT INFORMATION
  Report Type: Spontaneous
  Country: US (occurrence: US)
  Receive Date: 20131020
  Receipt Date: 20131023
  Transmission Date: 20140711
  Serious: No
  Sender: FDA-Public Use
  Company Number: US-009507513-1310USA007367

PATIENT
  Sex: Female

DRUGS (3)
  1. CLARITIN-D-12 [Suspect]
     Indication: LACRIMATION INCREASED
     Dosage: 5 MG, ONCE
     Route: 048
     Dates: start: 20131008
  2. CLARITIN-D-12 [Suspect]
     Indication: NASAL CONGESTION
  3. CLARITIN-D-12 [Suspect]
     Indication: FACIAL PAIN

REACTIONS (2)
  - Vision blurred [Recovered/Resolved]
  - Paraesthesia [Recovered/Resolved]
